FAERS Safety Report 6662139-X (Version None)
Quarter: 2010Q1

REPORT INFORMATION
  Report Type: 
  Country: None (occurrence: None)
  Receive Date: 20100329
  Receipt Date: 20100316
  Transmission Date: 20100710
  Serious: Yes (Hospitalization)
  Sender: FDA-Public Use
  Company Number: DELA20100004

PATIENT
  Age: 30 Year
  Sex: Male
  Weight: 133.8111 kg

DRUGS (6)
  1. DELATESTRYL [Suspect]
     Indication: DRUG USE FOR UNKNOWN INDICATION
     Dosage: TWICE WEEKLY, INTRAMUSCULAR
     Route: 030
  2. GROWTH HORMONE (HORMONES AND RELATED AGENTS) (4 INTERNATIONAL UNITS  T [Suspect]
     Indication: DRUG USE FOR UNKNOWN INDICATION
     Dosage: 5 DAYS PER WEEK
  3. EPHEDRINE SUL CAP [Concomitant]
  4. CAFFEINE (CAFFEINE) (CAFFEINE) [Concomitant]
  5. INSULIN (INSULIN) (INSULIN) [Concomitant]
  6. MULTIVITAMIN [Concomitant]

REACTIONS (15)
  - ANTINUCLEAR ANTIBODY POSITIVE [None]
  - ASTHENIA [None]
  - BLOOD CHOLESTEROL INCREASED [None]
  - BLOOD PRESSURE SYSTOLIC INCREASED [None]
  - DEPRESSION [None]
  - FOCAL SEGMENTAL GLOMERULOSCLEROSIS [None]
  - KIDNEY FIBROSIS [None]
  - LIBIDO DECREASED [None]
  - NEPHROPATHY TOXIC [None]
  - NEPHROTIC SYNDROME [None]
  - OEDEMA PERIPHERAL [None]
  - RENAL ARTERIOSCLEROSIS [None]
  - RENAL INJURY [None]
  - RENAL TUBULAR ATROPHY [None]
  - TREATMENT NONCOMPLIANCE [None]
